FAERS Safety Report 10077607 (Version 1)
Quarter: 2014Q2

REPORT INFORMATION
  Report Type: Spontaneous
  Country: US (occurrence: US)
  Receive Date: 20140414
  Receipt Date: 20140414
  Transmission Date: 20141212
  Serious: No
  Sender: FDA-Public Use
  Company Number: US-BANPHARM-20131965

PATIENT
  Age: 22 Year
  Sex: Male
  Weight: 180 kg

DRUGS (3)
  1. NAPROXEN SODIUM 220 MG [Suspect]
     Indication: BACK PAIN
     Dosage: 440 MG, ONCE,
     Route: 048
     Dates: start: 20131213, end: 20131213
  2. ADVIL [Concomitant]
     Dates: start: 201311, end: 20131212
  3. ANTIPSYCHOTICS [Concomitant]

REACTIONS (1)
  - Haematochezia [Not Recovered/Not Resolved]
